FAERS Safety Report 5153147-9 (Version None)
Quarter: 2006Q4

REPORT INFORMATION
  Report Type: 
  Country: None (occurrence: None)
  Receive Date: 20061117
  Receipt Date: 20061113
  Transmission Date: 20070319
  Serious: Yes (Hospitalization)
  Sender: FDA-Public Use
  Company Number: CH-GLAXOSMITHKLINE-B0446892A

PATIENT
  Age: 30 Year
  Sex: Female

DRUGS (7)
  1. QUILONORM RETARD [Suspect]
     Indication: BIPOLAR DISORDER
     Dosage: 675MG PER DAY
     Route: 048
     Dates: start: 20060307, end: 20060912
  2. VALPROATE SODIUM [Concomitant]
     Dates: start: 20060522
  3. EFFEXOR [Concomitant]
     Dates: start: 20060530, end: 20060605
  4. NALTREXONE HYDROCHLORIDE [Concomitant]
     Dates: start: 20060526
  5. VOLTAREN [Concomitant]
     Dates: start: 20060525
  6. LORAZEPAM [Concomitant]
  7. PROMAZINE HYDROCHLORIDE [Concomitant]

REACTIONS (5)
  - DIZZINESS [None]
  - HYPERHIDROSIS [None]
  - PARKINSONIAN GAIT [None]
  - PARKINSONISM [None]
  - TREMOR [None]
